FAERS Safety Report 4568126-X (Version None)
Quarter: 2005Q1

REPORT INFORMATION
  Report Type: 
  Country: None (occurrence: None)
  Receive Date: 20050202
  Receipt Date: 20050124
  Transmission Date: 20050727
  Serious: Yes (Hospitalization)
  Sender: FDA-Public Use
  Company Number: CA-ROCHE-393631

PATIENT
  Age: 63 Year
  Sex: Female

DRUGS (1)
  1. XENICAL [Suspect]
     Indication: OBESITY
     Route: 048
     Dates: start: 20020414, end: 20020615

REACTIONS (5)
  - EMBOLISM [None]
  - HEADACHE [None]
  - LOSS OF CONSCIOUSNESS [None]
  - MIGRAINE [None]
  - THROMBOSIS [None]
